FAERS Safety Report 9029714 (Version 3)
Quarter: 2013Q3

REPORT INFORMATION
  Report Type: Spontaneous
  Country: JP (occurrence: JP)
  Receive Date: 20130124
  Receipt Date: 20130927
  Transmission Date: 20140515
  Serious: Yes (Hospitalization)
  Sender: FDA-Public Use
  Company Number: JP-BIOMARINP-002959

PATIENT
  Age: 37 Year
  Sex: Female
  Weight: 24.5 kg

DRUGS (1)
  1. NAGLAZYME [Suspect]
     Indication: MUCOPOLYSACCHARIDOSIS VI
     Dosage: .5MG/KG,QW
     Route: 041
     Dates: start: 20120619, end: 20120807

REACTIONS (3)
  - Asthma [Recovering/Resolving]
  - Urticaria [Recovered/Resolved]
  - Upper respiratory tract infection [Recovered/Resolved]
